FAERS Safety Report 20192693 (Version 1)
Quarter: 2021Q4

REPORT INFORMATION
  Report Type: Spontaneous
  Country: US (occurrence: US)
  Receive Date: 20211216
  Receipt Date: 20211216
  Transmission Date: 20220304
  Serious: Yes (Other)
  Sender: FDA-Public Use
  Company Number: US-BION-010207

PATIENT
  Age: 46 Year
  Sex: Female
  Weight: 153.31 kg

DRUGS (18)
  1. ERGOCALCIFEROL [Suspect]
     Active Substance: ERGOCALCIFEROL
     Indication: Product used for unknown indication
  2. KORLYM [Suspect]
     Active Substance: MIFEPRISTONE
     Indication: Cushing^s syndrome
     Dosage: QD
     Route: 048
     Dates: start: 2021, end: 202106
  3. METFORMIN [Suspect]
     Active Substance: METFORMIN HYDROCHLORIDE
     Indication: Product used for unknown indication
  4. ASPIRIN [Concomitant]
     Active Substance: ASPIRIN
  5. AFRIN [Concomitant]
     Active Substance: OXYMETAZOLINE
  6. BUSPIRONE [Concomitant]
     Active Substance: BUSPIRONE HYDROCHLORIDE
  7. CELECOXIB [Concomitant]
     Active Substance: CELECOXIB
  8. CHLORTHALIDONE [Concomitant]
     Active Substance: CHLORTHALIDONE
  9. FUROSEMIDE [Concomitant]
     Active Substance: FUROSEMIDE
  10. KETOCONAZOLE [Concomitant]
     Active Substance: KETOCONAZOLE
  11. LOSARTAN [Concomitant]
     Active Substance: LOSARTAN
  12. ONDANSETRON [Concomitant]
     Active Substance: ONDANSETRON
  13. KCL [Concomitant]
     Active Substance: POTASSIUM CHLORIDE
  14. ROSUVASTATIN [Concomitant]
     Active Substance: ROSUVASTATIN
  15. SERTRALINE [Concomitant]
     Active Substance: SERTRALINE HYDROCHLORIDE
  16. SOTALOL [Concomitant]
     Active Substance: SOTALOL
  17. TRAMADOL [Concomitant]
     Active Substance: TRAMADOL
  18. VITAMIN B12 [Concomitant]
     Active Substance: CYANOCOBALAMIN

REACTIONS (7)
  - Arrhythmia [Unknown]
  - Blood pressure increased [Not Recovered/Not Resolved]
  - Vitamin D increased [Unknown]
  - Blood glucose fluctuation [Unknown]
  - Blood potassium decreased [Unknown]
  - Therapeutic product effect decreased [Not Recovered/Not Resolved]
  - Fluid retention [Unknown]
